FAERS Safety Report 9434435 (Version 1)
Quarter: 2013Q3

REPORT INFORMATION
  Report Type: Spontaneous
  Country: US (occurrence: None)
  Receive Date: 20130731
  Receipt Date: 20130731
  Transmission Date: 20140515
  Serious: Yes (Other)
  Sender: FDA-Public Use
  Company Number: None

PATIENT
  Sex: Female

DRUGS (1)
  1. ABAGIO [Suspect]
     Indication: MULTIPLE SCLEROSIS
     Dosage: 14 MG ONCE DAILY BY MOUTH
     Route: 048
     Dates: start: 20130405

REACTIONS (3)
  - Chest pain [None]
  - Blood potassium decreased [None]
  - Hypoaesthesia [None]
